FAERS Safety Report 8368939-2 (Version None)
Quarter: 2012Q2

REPORT INFORMATION
  Report Type: 
  Country: None (occurrence: None)
  Receive Date: 20120516
  Receipt Date: 20120516
  Transmission Date: 20120825
  Serious: Yes (Hospitalization)
  Sender: FDA-Public Use
  Company Number: None

PATIENT
  Sex: Female
  Weight: 88.6 kg

DRUGS (1)
  1. PROLEUKIN [Suspect]
     Dates: end: 20120505

REACTIONS (1)
  - LYMPHOCYTE COUNT DECREASED [None]
